FAERS Safety Report 6711198-4 (Version None)
Quarter: 2010Q2

REPORT INFORMATION
  Report Type: 
  Country: None (occurrence: None)
  Receive Date: 20100505
  Receipt Date: 20100429
  Transmission Date: 20101027
  Serious: Yes (Hospitalization)
  Sender: FDA-Public Use
  Company Number: GB-ELI_LILLY_AND_COMPANY-GB201004007990

PATIENT
  Age: 58 Year
  Sex: Male
  Weight: 108 kg

DRUGS (4)
  1. BYETTA [Suspect]
     Indication: DIABETES MELLITUS
     Dosage: 5 UG, UNKNOWN
     Route: 058
     Dates: start: 20100316, end: 20100406
  2. METFORMIN [Concomitant]
     Indication: DIABETES MELLITUS
     Dosage: 1 G, 2/D
     Route: 048
  3. NATEGLINIDE [Concomitant]
     Indication: DIABETES MELLITUS
     Dosage: 120 MG, 3/D
     Route: 048
  4. ROSIGLITAZONE [Concomitant]
     Indication: DIABETES MELLITUS
     Dosage: 4 MG, DAILY (1/D)
     Route: 048
     Dates: start: 20100420

REACTIONS (1)
  - DYSPNOEA [None]
